FAERS Safety Report 8351749-X (Version None)
Quarter: 2012Q2

REPORT INFORMATION
  Report Type: 
  Country: None (occurrence: None)
  Receive Date: 20120511
  Receipt Date: 20120503
  Transmission Date: 20120825
  Serious: No
  Sender: FDA-Public Use
  Company Number: US-BIOGENIDEC-2012BI015868

PATIENT
  Age: 41 Year
  Sex: Male

DRUGS (4)
  1. TYSABRI [Suspect]
     Indication: MULTIPLE SCLEROSIS
     Route: 042
     Dates: start: 20010126
  2. TYSABRI [Suspect]
     Route: 042
     Dates: start: 20080514
  3. TYSABRI [Suspect]
     Route: 042
     Dates: start: 20070308, end: 20070524
  4. AVONEX [Concomitant]
     Indication: MULTIPLE SCLEROSIS
     Route: 030

REACTIONS (4)
  - VISUAL IMPAIRMENT [None]
  - HEMIPARESIS [None]
  - MUSCULAR WEAKNESS [None]
  - ANXIETY [None]
